FAERS Safety Report 16573722 (Version 2)
Quarter: 2019Q3

REPORT INFORMATION
  Report Type: Report from Study
  Country: US (occurrence: US)
  Receive Date: 20190715
  Receipt Date: 20190716
  Transmission Date: 20191004
  Serious: Yes (Other)
  Sender: FDA-Public Use
  Company Number: US-JNJFOC-20190706025

PATIENT
  Age: 50 Year
  Sex: Male

DRUGS (11)
  1. FAMOTIDINE. [Concomitant]
     Active Substance: FAMOTIDINE
  2. NIACIN. [Concomitant]
     Active Substance: NIACIN
  3. IMBRUVICA [Suspect]
     Active Substance: IBRUTINIB
     Indication: CHRONIC LYMPHOCYTIC LEUKAEMIA
     Dosage: 420 MG, QD
     Route: 048
     Dates: start: 20180510
  4. DRONABINOL. [Concomitant]
     Active Substance: DRONABINOL
  5. RANITIDINE HYDROCHLORIDE. [Concomitant]
     Active Substance: RANITIDINE HYDROCHLORIDE
  6. MAGNESIUM [Concomitant]
     Active Substance: MAGNESIUM
  7. GLUCOSAMINE CHONDROITIN            /01430901/ [Concomitant]
  8. ONDANSETRON [Concomitant]
     Active Substance: ONDANSETRON
  9. ALLOPURINOL. [Concomitant]
     Active Substance: ALLOPURINOL
  10. ESZOPICLONE. [Concomitant]
     Active Substance: ESZOPICLONE
  11. LORATADINE. [Concomitant]
     Active Substance: LORATADINE

REACTIONS (2)
  - Staphylococcal infection [Unknown]
  - Neck mass [Unknown]

NARRATIVE: CASE EVENT DATE: 20190528
